FAERS Safety Report 14815757 (Version 3)
Quarter: 2018Q3

REPORT INFORMATION
  Report Type: Spontaneous
  Country: US (occurrence: US)
  Receive Date: 20180426
  Receipt Date: 20180703
  Transmission Date: 20181010
  Serious: Yes (Hospitalization, Other)
  Sender: FDA-Public Use
  Company Number: US-GLAXOSMITHKLINE-US2018069427

PATIENT
  Age: 45 Year
  Sex: Male
  Weight: 102.5 kg

DRUGS (3)
  1. AMLODIPINE [Suspect]
     Active Substance: AMLODIPINE BESYLATE
     Indication: HYPERTENSION
     Dosage: 10 MG, QD
  2. FLONASE ALLERGY RELIEF [Suspect]
     Active Substance: FLUTICASONE PROPIONATE
     Indication: PRODUCT USED FOR UNKNOWN INDICATION
     Dosage: UNK UNK, BID
     Route: 045
     Dates: start: 20180201, end: 20180401
  3. FLUTICASONE NASAL SPRAY [Suspect]
     Active Substance: FLUTICASONE
     Indication: PRODUCT USED FOR UNKNOWN INDICATION

REACTIONS (27)
  - Blood pressure increased [Unknown]
  - Burning sensation [Unknown]
  - Visual impairment [Unknown]
  - Night sweats [Unknown]
  - Dyspnoea exertional [Unknown]
  - Lung disorder [Unknown]
  - Peripheral coldness [Unknown]
  - Chest pain [Recovered/Resolved]
  - Hypoaesthesia [Unknown]
  - Palpitations [Unknown]
  - Pain [Unknown]
  - Heart rate increased [Unknown]
  - Chest discomfort [Unknown]
  - Hypertension [Not Recovered/Not Resolved]
  - Angina pectoris [Unknown]
  - Nausea [Recovered/Resolved]
  - Sinus tachycardia [Unknown]
  - Tremor [Unknown]
  - Dyspnoea [Unknown]
  - Anxiety [Recovered/Resolved]
  - Product quality issue [Unknown]
  - Paraesthesia [Unknown]
  - Inappropriate schedule of drug administration [Unknown]
  - Pain in extremity [Unknown]
  - Tachycardia [Not Recovered/Not Resolved]
  - Panic attack [Not Recovered/Not Resolved]
  - Neck pain [Unknown]

NARRATIVE: CASE EVENT DATE: 20180214
